FAERS Safety Report 4982092-4 (Version None)
Quarter: 2006Q2

REPORT INFORMATION
  Report Type: 
  Country: None (occurrence: None)
  Receive Date: 20060425
  Receipt Date: 20060313
  Transmission Date: 20061013
  Serious: Yes (Hospitalization)
  Sender: FDA-Public Use
  Company Number: US-MERCK-0603USA02254

PATIENT
  Age: 71 Year
  Sex: Female
  Weight: 75 kg

DRUGS (48)
  1. VIOXX [Suspect]
     Indication: PAIN MANAGEMENT
     Route: 048
     Dates: start: 20011106, end: 20040930
  2. VIOXX [Suspect]
     Indication: ARTHRITIS
     Route: 048
     Dates: start: 20011106, end: 20040930
  3. MELATONINA [Concomitant]
     Route: 065
  4. CALCET [Concomitant]
     Route: 065
  5. POTASSIUM GLUCONATE [Concomitant]
     Route: 065
  6. AMITRIPTYLIN [Concomitant]
     Route: 065
  7. LIBRIUM [Concomitant]
     Route: 065
  8. DARVOCET [Concomitant]
     Route: 065
  9. PLAQUENIL [Concomitant]
     Route: 065
  10. PRINZIDE [Concomitant]
     Route: 065
  11. LEVOXYL [Concomitant]
     Route: 065
  12. PREMARIN [Concomitant]
     Route: 065
  13. PREVACID [Concomitant]
     Route: 065
  14. EFFEXOR XR [Concomitant]
     Route: 065
  15. CALCET [Concomitant]
     Route: 065
  16. LECITHIN [Concomitant]
     Route: 065
  17. BILBERRY [Concomitant]
     Route: 065
  18. BETA CAROTENE [Concomitant]
     Route: 065
  19. LYSINE HYDROCHLORIDE [Concomitant]
     Route: 065
  20. DIMETHYL SULFONE [Concomitant]
     Route: 065
  21. VITAMIN A [Concomitant]
     Route: 065
  22. UBIDECARENONE [Concomitant]
     Route: 065
  23. CHROMIUM PICOLINATE [Concomitant]
     Route: 065
  24. FOLIC ACID [Concomitant]
     Route: 065
  25. ICAPS [Concomitant]
     Route: 065
  26. CYSTEX [Concomitant]
     Route: 065
  27. [THERAPY UNSPECIFIED] [Concomitant]
     Route: 065
  28. OREGANO OIL [Concomitant]
     Route: 065
  29. XANTHOPHYLL [Concomitant]
     Route: 065
  30. MAGNESIUM (UNSPECIFIED) [Concomitant]
     Route: 065
  31. ECHINACEA (UNSPECIFIED) [Concomitant]
     Route: 065
  32. GOLDENSEAL [Concomitant]
     Route: 065
  33. ZINC (UNSPECIFIED) [Concomitant]
     Route: 065
  34. [THERAPY UNSPECIFIED] [Concomitant]
     Route: 065
  35. DIOVAN [Concomitant]
     Route: 065
  36. FUROSEMIDE [Concomitant]
     Route: 065
  37. POTASSIUM CHLORIDE [Concomitant]
     Route: 065
  38. LASIX [Concomitant]
     Route: 065
  39. LISINOPRIL [Concomitant]
     Route: 065
  40. CHLORDIAZEPOXIDE [Concomitant]
     Route: 065
  41. AMOXICILLIN [Concomitant]
     Route: 065
  42. ACETAMINOPHEN AND PROPOXYPHENE NAPSYLATE [Concomitant]
     Route: 065
  43. AMOXI/CLAV [Concomitant]
     Route: 065
  44. DIFLUCAN [Concomitant]
     Route: 065
  45. ALPRAZOLAM [Concomitant]
     Route: 065
  46. LEVAQUIN [Concomitant]
     Route: 065
  47. WARFARIN [Concomitant]
     Route: 065
  48. TOPROL-XL [Concomitant]
     Route: 065

REACTIONS (6)
  - ACCELERATED HYPERTENSION [None]
  - APHASIA [None]
  - ARTHROPATHY [None]
  - CEREBROVASCULAR ACCIDENT [None]
  - CHEST PAIN [None]
  - MIGRAINE [None]
